FAERS Safety Report 11368270 (Version 1)
Quarter: 2015Q3

REPORT INFORMATION
  Report Type: Spontaneous
  Country: US (occurrence: US)
  Receive Date: 20150811
  Receipt Date: 20150811
  Transmission Date: 20151125
  Serious: No
  Sender: FDA-Public Use
  Company Number: US-ELI_LILLY_AND_COMPANY-US201404006343

PATIENT
  Age: 55 Year
  Sex: Female

DRUGS (1)
  1. AXIRON [Suspect]
     Active Substance: TESTOSTERONE
     Indication: PRODUCT USED FOR UNKNOWN INDICATION
     Dosage: 60 MG, UNK
     Route: 065

REACTIONS (4)
  - Blood testosterone increased [Recovered/Resolved]
  - Accidental exposure to product [Unknown]
  - Alopecia [Unknown]
  - Libido increased [Unknown]
